FAERS Safety Report 5513950-X (Version None)
Quarter: 2007Q4

REPORT INFORMATION
  Report Type: 
  Country: None (occurrence: None)
  Receive Date: 20071113
  Receipt Date: 20071107
  Transmission Date: 20080405
  Serious: Yes (Hospitalization)
  Sender: FDA-Public Use
  Company Number: FR-BRISTOL-MYERS SQUIBB COMPANY-13974621

PATIENT
  Age: 45 Year
  Sex: Female

DRUGS (6)
  1. ABILIFY [Suspect]
     Indication: SCHIZOPHRENIA
     Dosage: RECEIVED 3 MONTHS OF TREATMENT
     Dates: end: 20070502
  2. RAMIPRIL [Suspect]
     Dates: start: 20060101, end: 20070502
  3. RIVOTRIL [Suspect]
     Dosage: GIVEN FOR LAST 8 MONTHS
  4. PREVISCAN [Suspect]
     Dosage: 1 DOSAGEFORM = 0.75 (UNITS NOT SPECIFIED), GIVEN FOR 1 YEAR
     Dates: end: 20070502
  5. HERCEPTIN [Suspect]
     Dosage: GIVEN FOR 10 MONTHS
     Route: 042
     Dates: end: 20070502
  6. ARIMIDEX [Suspect]
     Indication: BREAST CANCER
     Dosage: GIVEN FOR 10 MONTHS
     Dates: end: 20070502

REACTIONS (2)
  - BONE MARROW FAILURE [None]
  - MYOCLONUS [None]
